FAERS Safety Report 18680973 (Version 1)
Quarter: 2020Q4

REPORT INFORMATION
  Report Type: Spontaneous
  Country: US (occurrence: US)
  Receive Date: 20201229
  Receipt Date: 20201229
  Transmission Date: 20210114
  Serious: Yes (Death, Other)
  Sender: FDA-Public Use
  Company Number: US-PURDUE PHARMA-USA-2020-0193331

PATIENT
  Age: 18 Year
  Sex: Male

DRUGS (1)
  1. OXYCONTIN [Suspect]
     Active Substance: OXYCODONE HYDROCHLORIDE
     Indication: LIGAMENT SPRAIN
     Dosage: 30 MG, Q4H
     Route: 048
     Dates: start: 200406, end: 20140605

REACTIONS (2)
  - Overdose [Unknown]
  - Death [Fatal]
